FAERS Safety Report 10925700 (Version 1)
Quarter: 2015Q1

REPORT INFORMATION
  Report Type: Spontaneous
  Country: IT (occurrence: IT)
  Receive Date: 20150318
  Receipt Date: 20150318
  Transmission Date: 20150721
  Serious: Yes (Other)
  Sender: FDA-Public Use
  Company Number: IT-JNJFOC-20150307479

PATIENT
  Age: 29 Year
  Sex: Male

DRUGS (2)
  1. INVEGA [Suspect]
     Active Substance: PALIPERIDONE
     Indication: SELF INJURIOUS BEHAVIOUR
     Route: 048
     Dates: start: 20150309, end: 20150309
  2. DEPAKENE [Suspect]
     Active Substance: VALPROIC ACID
     Indication: SELF INJURIOUS BEHAVIOUR
     Route: 048
     Dates: start: 20150309, end: 20150309

REACTIONS (2)
  - Self injurious behaviour [Unknown]
  - Intentional overdose [Unknown]

NARRATIVE: CASE EVENT DATE: 20150309
